FAERS Safety Report 5327764-7 (Version None)
Quarter: 2007Q2

REPORT INFORMATION
  Report Type: 
  Country: None (occurrence: None)
  Receive Date: 20070226
  Receipt Date: 20060503
  Transmission Date: 20071010
  Serious: Yes (Other)
  Sender: FDA-Public Use
  Company Number: DSA_28122_2006

PATIENT
  Age: 76 Year
  Sex: Female
  Weight: 117.9352 kg

DRUGS (2)
  1. VASOTEC [Suspect]
     Dosage: DF PO
     Route: 048
  2. BENEFIBER FIBER SUPPLEMENT [Suspect]
     Indication: NUTRITIONAL SUPPORT
     Dosage: 6 TSP Q DAY PO
     Route: 048
     Dates: start: 20051103, end: 20051106

REACTIONS (3)
  - DISEASE RECURRENCE [None]
  - HYPERSENSITIVITY [None]
  - TONGUE OEDEMA [None]
